FAERS Safety Report 6737625-4 (Version None)
Quarter: 2010Q2

REPORT INFORMATION
  Report Type: 
  Country: None (occurrence: None)
  Receive Date: 20100521
  Receipt Date: 20100521
  Transmission Date: 20101027
  Serious: Yes (Other)
  Sender: FDA-Public Use
  Company Number: None

PATIENT
  Age: 57 Year
  Sex: Female
  Weight: 74.8435 kg

DRUGS (2)
  1. FOSAMAX [Suspect]
     Indication: BONE DENSITY DECREASED
     Dosage: ONE TABLET DAILY PO
     Route: 048
     Dates: start: 19980221, end: 20011030
  2. FOSAMAX [Suspect]
     Indication: BONE DENSITY DECREASED
     Dosage: ONE TABLET 1 WEEK PO
     Route: 048
     Dates: start: 20011031, end: 20050920

REACTIONS (4)
  - FEMUR FRACTURE [None]
  - FRACTURE DELAYED UNION [None]
  - PAIN IN EXTREMITY [None]
  - STRESS FRACTURE [None]
